FAERS Safety Report 21157492 (Version 1)
Quarter: 2022Q3

REPORT INFORMATION
  Report Type: Spontaneous
  Country: US (occurrence: None)
  Receive Date: 20220801
  Receipt Date: 20220801
  Transmission Date: 20221026
  Serious: Yes (Hospitalization)
  Sender: FDA-Public Use
  Company Number: None

PATIENT
  Sex: Male

DRUGS (1)
  1. ADYNOVATE [Suspect]
     Active Substance: ANTIHEMOPHILIC FACTOR, HUMAN RECOMBINANT
     Indication: Factor VII deficiency
     Dosage: 4000 UNITS PRN IV
     Route: 042
     Dates: start: 202203

REACTIONS (4)
  - Haemorrhage [None]
  - Rash [None]
  - Pruritus [None]
  - Infusion related reaction [None]
